FAERS Safety Report 6856112-6 (Version None)
Quarter: 2010Q3

REPORT INFORMATION
  Report Type: 
  Country: None (occurrence: None)
  Receive Date: 20100719
  Receipt Date: 20100705
  Transmission Date: 20110219
  Serious: Yes (Other)
  Sender: FDA-Public Use
  Company Number: PHHY2010IE26369

PATIENT
  Sex: Male
  Weight: 96.1 kg

DRUGS (9)
  1. CLOZARIL [Suspect]
     Indication: SCHIZOPHRENIA
     Dosage: 250MG/DAY
     Route: 048
  2. CLOZARIL [Suspect]
     Dosage: 200 MG, QD
     Route: 048
     Dates: start: 20100215
  3. CLOZARIL [Suspect]
     Dosage: 175MG/DAY
     Route: 048
  4. TOPAMAX [Concomitant]
     Indication: WEIGHT INCREASED
     Dosage: 100MG/DAY
     Route: 048
     Dates: start: 20100217
  5. BECOTIDE [Concomitant]
     Indication: ASTHMA
     Dosage: 2 PUFFS BID
  6. ALBUTEROL [Concomitant]
  7. KWELLS [Concomitant]
     Indication: SALIVARY HYPERSECRETION
     Dosage: BID
     Route: 048
  8. PROTIUM [Concomitant]
     Indication: NAUSEA
     Dosage: 40MG/DAY
     Route: 048
  9. BISOPROLOL [Concomitant]
     Indication: TACHYCARDIA
     Dosage: 1.25
     Route: 048
     Dates: start: 20100413

REACTIONS (5)
  - ANTIPSYCHOTIC DRUG LEVEL ABOVE THERAPEUTIC [None]
  - DYSARTHRIA [None]
  - SALIVARY HYPERSECRETION [None]
  - SINUS TACHYCARDIA [None]
  - VISION BLURRED [None]
